FAERS Safety Report 19251902 (Version 1)
Quarter: 2021Q2

REPORT INFORMATION
  Report Type: Spontaneous
  Country: US (occurrence: US)
  Receive Date: 20210512
  Receipt Date: 20210512
  Transmission Date: 20210717
  Serious: No
  Sender: FDA-Public Use
  Company Number: None

PATIENT
  Age: 63 Year
  Sex: Female
  Weight: 78.5 kg

DRUGS (22)
  1. CALCIUM 600 + D [Concomitant]
     Active Substance: CALCIUM\VITAMIN D
  2. ELDERBERRY [Concomitant]
     Active Substance: HERBALS
  3. OMEPRAZOLE. [Concomitant]
     Active Substance: OMEPRAZOLE
  4. IBRANCE [Suspect]
     Active Substance: PALBOCICLIB
     Indication: BREAST CANCER
     Route: 048
     Dates: start: 20210501
  5. ASPIRIN ADULT LOW DOSE [Concomitant]
     Active Substance: ASPIRIN
  6. LEVAQUIN [Concomitant]
     Active Substance: LEVOFLOXACIN
  7. NAPROXEN. [Concomitant]
     Active Substance: NAPROXEN
  8. IBUPROFEN. [Concomitant]
     Active Substance: IBUPROFEN
  9. MAGIC MOUTHWASH [Concomitant]
     Active Substance: DIPHENHYDRAMINE HYDROCHLORIDE\LIDOCAINE HYDROCHLORIDE\NYSTATIN
  10. RANITIDINE HCL [Concomitant]
     Active Substance: RANITIDINE HYDROCHLORIDE
  11. SENNA?DOCUSATE SODIUM [Concomitant]
  12. LETROZOLE. [Concomitant]
     Active Substance: LETROZOLE
  13. LINZESS [Concomitant]
     Active Substance: LINACLOTIDE
  14. MELATONIN [Concomitant]
     Active Substance: MELATONIN
  15. MULTIVITAMIN ADULTS [Concomitant]
  16. AMLODIPINE BESYLATE. [Concomitant]
     Active Substance: AMLODIPINE BESYLATE
  17. LORATADINE. [Concomitant]
     Active Substance: LORATADINE
  18. MAGNESIUM OXIDE. [Concomitant]
     Active Substance: MAGNESIUM OXIDE
  19. DIPHENHYDRAMINE HCL [Concomitant]
     Active Substance: DIPHENHYDRAMINE HYDROCHLORIDE
  20. PROVENTIL HFA [Concomitant]
     Active Substance: ALBUTEROL SULFATE
  21. ALPRAZOLAM. [Concomitant]
     Active Substance: ALPRAZOLAM
  22. GABAPENTIN. [Concomitant]
     Active Substance: GABAPENTIN

REACTIONS (1)
  - Fatigue [None]

NARRATIVE: CASE EVENT DATE: 20210501
